FAERS Safety Report 21555218 (Version 1)
Quarter: 2022Q4

REPORT INFORMATION
  Report Type: Spontaneous
  Country: GB (occurrence: GB)
  Receive Date: 20221104
  Receipt Date: 20221104
  Transmission Date: 20230113
  Serious: Yes (Other)
  Sender: FDA-Public Use
  Company Number: None

PATIENT
  Age: 51 Year
  Sex: Female
  Weight: 65 kg

DRUGS (12)
  1. TOPIRAMATE [Suspect]
     Active Substance: TOPIRAMATE
     Indication: Product used for unknown indication
     Dosage: UNIT DOSE: 25MG
     Route: 065
     Dates: start: 20220922
  2. ACYCLOVIR [Concomitant]
     Active Substance: ACYCLOVIR
     Indication: Product used for unknown indication
     Dosage: 3 DOSAGE FORMS DAILY; THREE TIMES DAILY, UNIT DOSE:; 1DF, DURATION: 2415 DAYS
     Dates: start: 20160205, end: 20220916
  3. CYCLIZINE [Concomitant]
     Active Substance: CYCLIZINE
     Indication: Product used for unknown indication
     Dosage: 150 MILLIGRAM DAILY; TAKE 50 MG TO BE TAKEN THREE TIMES DAILY, DURATION: 1 DAYS
     Dates: start: 20220809, end: 20220810
  4. ESTRADIOL [Concomitant]
     Active Substance: ESTRADIOL
     Indication: Product used for unknown indication
     Dosage: APPLY TWICE WEEKLY, UNIT DOSE: 1 DF, DURATION: 133 DAYS
     Dates: start: 20220330, end: 20220810
  5. LANSOPRAZOLE [Concomitant]
     Active Substance: LANSOPRAZOLE
     Indication: Product used for unknown indication
     Dosage: 2 DOSAGE FORMS DAILY; 1BD
     Dates: start: 20221021
  6. NAPROXEN [Concomitant]
     Active Substance: NAPROXEN
     Indication: Product used for unknown indication
     Dosage: 2 DOSAGE FORMS DAILY; TAKE ONE TWICE DAILY AFTER FOOD
     Dates: start: 20221021
  7. ESTRIOL [Concomitant]
     Active Substance: ESTRIOL
     Indication: Product used for unknown indication
     Dosage: APPLY AT NIGHT THREE TIMES A WEEK, UNIT DOSE: 1DF, DURATION: 324 DAYS
     Dates: start: 20211027, end: 20220916
  8. PAROXETINE [Concomitant]
     Active Substance: PAROXETINE
     Indication: Product used for unknown indication
     Dosage: 1 DOSAGE FORMS DAILY; TAKE ONE DAILY, DURATION: 37 DAYS
     Dates: start: 20220810, end: 20220916
  9. PIZOTYLINE [Concomitant]
     Active Substance: PIZOTYLINE
     Indication: Product used for unknown indication
     Dosage: 1 DOSAGE FORMS DAILY; 1 NOCTE, BUT CAN GO UP TO 3 NOCTE, DURATION: 28 DAYS
     Dates: start: 20220916, end: 20221014
  10. PROPRANOLOL [Concomitant]
     Active Substance: PROPRANOLOL HYDROCHLORIDE
     Indication: Product used for unknown indication
     Dosage: 3 DOSAGE FORMS DAILY; TAKE ONE 3 TIMES A DAY, DURATION: 28 DAYS
     Dates: start: 20220809, end: 20220906
  11. RIZATRIPTAN [Concomitant]
     Active Substance: RIZATRIPTAN
     Indication: Migraine
     Dosage: TAKE ONE TO TWO  AT ONSET OF MIGRAINE, CAN BE R, DURATION: 3 DAYS
     Dates: start: 20220916, end: 20220919
  12. SUMATRIPTAN [Concomitant]
     Active Substance: SUMATRIPTAN
     Indication: Product used for unknown indication
     Dosage: 50MG TO 100MG AT ONSET OF ATTACK. IF THE PATIEN
     Dates: start: 20220923

REACTIONS (1)
  - Chest discomfort [Unknown]

NARRATIVE: CASE EVENT DATE: 20221021
